FAERS Safety Report 7944846-1 (Version None)
Quarter: 2011Q4

REPORT INFORMATION
  Report Type: 
  Country: None (occurrence: None)
  Receive Date: 20111129
  Receipt Date: 20101115
  Transmission Date: 20120403
  Serious: No
  Sender: FDA-Public Use
  Company Number: US-MYLANLABS-2010S1019327

PATIENT
  Age: 69 Year
  Sex: Female

DRUGS (5)
  1. HYDROCHLOROTHIAZIDE [Concomitant]
  2. LOVASTATIN [Concomitant]
  3. AMLODIPINE BESYLATE [Suspect]
     Indication: BLOOD PRESSURE INCREASED
     Route: 048
     Dates: start: 20080101
  4. DOXAZOSIN MESYLATE [Concomitant]
  5. TOPROL-XL [Concomitant]

REACTIONS (4)
  - THROAT IRRITATION [None]
  - DYSPNOEA [None]
  - DYSGEUSIA [None]
  - PRESYNCOPE [None]
